FAERS Safety Report 8397731-8 (Version None)
Quarter: 2012Q2

REPORT INFORMATION
  Report Type: 
  Country: None (occurrence: None)
  Receive Date: 20120531
  Receipt Date: 20120521
  Transmission Date: 20120825
  Serious: Yes (Death, Hospitalization, Other)
  Sender: FDA-Public Use
  Company Number: JP-BAYER-2011-014638

PATIENT
  Age: 62 Year
  Sex: Male
  Weight: 76 kg

DRUGS (10)
  1. AMINOLEBAN EN [Concomitant]
     Dosage: DAILY DOSE 50 G
     Route: 048
     Dates: start: 20110119
  2. BRIVANIB ALANINATE OR PLACEBO [Suspect]
     Indication: HEPATIC NEOPLASM MALIGNANT
     Dosage: 800 MG, QD
     Route: 048
     Dates: start: 20101220, end: 20110115
  3. NEXAVAR [Suspect]
     Indication: HEPATIC NEOPLASM MALIGNANT
     Dosage: DAILY DOSE 800 MG
     Route: 048
     Dates: start: 20110128, end: 20110209
  4. URSO 250 [Concomitant]
     Dosage: DAILY DOSE 300 MG
     Route: 048
  5. LOSARTAN POTASSIUM [Concomitant]
     Dosage: DAILY DOSE 50 MG
     Route: 048
  6. ACETAMINOPHEN [Concomitant]
     Dosage: UNK
     Route: 048
     Dates: start: 20110209, end: 20110216
  7. LEVOFLOXACIN [Concomitant]
     Dosage: UNK
     Route: 048
     Dates: start: 20110209, end: 20110212
  8. NORVASC [Concomitant]
     Dosage: DAILY DOSE 2.5 MG
     Route: 048
  9. HUMALOG [Concomitant]
     Route: 058
  10. BARACLUDE [Concomitant]
     Dosage: DAILY DOSE .5 MG
     Route: 048

REACTIONS (9)
  - INFECTION [None]
  - RENAL FAILURE ACUTE [None]
  - ACUTE HEPATIC FAILURE [None]
  - DISSEMINATED INTRAVASCULAR COAGULATION [None]
  - PULMONARY OEDEMA [None]
  - ADVERSE DRUG REACTION [None]
  - PLATELET COUNT DECREASED [None]
  - PYREXIA [None]
  - LIVER ABSCESS [None]
